FAERS Safety Report 5452732-4 (Version None)
Quarter: 2007Q3

REPORT INFORMATION
  Report Type: 
  Country: None (occurrence: None)
  Receive Date: 20070914
  Receipt Date: 20070910
  Transmission Date: 20080115
  Serious: Yes (Death)
  Sender: FDA-Public Use
  Company Number: JP-ASTRAZENECA-2007AP04840

PATIENT
  Age: 54 Year
  Sex: Male

DRUGS (9)
  1. SEROQUEL [Suspect]
     Indication: SCHIZOPHRENIA
     Route: 048
     Dates: start: 20070401
  2. DEPAKENE [Suspect]
     Route: 048
  3. PAXIL [Concomitant]
     Dates: start: 20070701
  4. NITRAZEPAM [Concomitant]
  5. HALCION [Concomitant]
  6. SILECE [Concomitant]
  7. LINTON [Concomitant]
  8. CHLORPROMAZINE [Concomitant]
  9. UNSPECIFIED DRUG [Concomitant]

REACTIONS (2)
  - CARDIO-RESPIRATORY ARREST [None]
  - NERVOUS SYSTEM DISORDER [None]
